FAERS Safety Report 19609083 (Version 1)
Quarter: 2021Q3

REPORT INFORMATION
  Report Type: Spontaneous
  Country: US (occurrence: US)
  Receive Date: 20210723
  Receipt Date: 20210723
  Transmission Date: 20211014
  Serious: No
  Sender: FDA-Public Use
  Company Number: None

PATIENT
  Age: 70 Year
  Sex: Female

DRUGS (1)
  1. TERIPARATIDE [Suspect]
     Active Substance: TERIPARATIDE
     Route: 048
     Dates: start: 20210714

REACTIONS (3)
  - Swelling face [None]
  - Pruritus [None]
  - Lip swelling [None]

NARRATIVE: CASE EVENT DATE: 20210714
